FAERS Safety Report 15755535 (Version 2)
Quarter: 2019Q1

REPORT INFORMATION
  Report Type: Spontaneous
  Country: FI (occurrence: FI)
  Receive Date: 20181224
  Receipt Date: 20190202
  Transmission Date: 20190417
  Serious: Yes (Death, Other)
  Sender: FDA-Public Use
  Company Number: FI-ACCORD-096725

PATIENT
  Age: 8 Year

DRUGS (1)
  1. TOPOTECAN [Suspect]
     Active Substance: TOPOTECAN HYDROCHLORIDE
     Indication: BRAIN STEM GLIOMA
     Route: 041

REACTIONS (4)
  - Off label use [Fatal]
  - Product use issue [Fatal]
  - Brain stem glioma [Fatal]
  - Malignant neoplasm progression [Fatal]
